FAERS Safety Report 4734637-7 (Version None)
Quarter: 2005Q3

REPORT INFORMATION
  Report Type: 
  Country: None (occurrence: None)
  Receive Date: 20050721
  Receipt Date: 20050421
  Transmission Date: 20060218
  Serious: No
  Sender: FDA-Public Use
  Company Number: 2005SP000293

PATIENT
  Age: 50 Year
  Sex: Female

DRUGS (1)
  1. LUNESTA [Suspect]
     Indication: SLEEP DISORDER
     Dosage: 1 MG;HS;ORAL
     Route: 048
     Dates: start: 20050408, end: 20050412

REACTIONS (1)
  - POSTMENOPAUSAL HAEMORRHAGE [None]
